FAERS Safety Report 4290964-1 (Version None)
Quarter: 2004Q1

REPORT INFORMATION
  Report Type: 
  Country: None (occurrence: None)
  Receive Date: 20040209
  Receipt Date: 20040122
  Transmission Date: 20041129
  Serious: Yes (Hospitalization)
  Sender: FDA-Public Use
  Company Number: PHBS2004IL01235

PATIENT
  Age: 80 Year
  Sex: Female

DRUGS (2)
  1. VISUDYNE [Suspect]
     Indication: MACULAR DEGENERATION
  2. NIFEDIPINE [Concomitant]

REACTIONS (7)
  - ATRIAL FIBRILLATION [None]
  - BACK PAIN [None]
  - CARDIAC FAILURE [None]
  - HEART RATE INCREASED [None]
  - MYOCARDIAL INFARCTION [None]
  - PALPITATIONS [None]
  - PULMONARY CONGESTION [None]
